FAERS Safety Report 9458314 (Version 1)
Quarter: 2013Q3

REPORT INFORMATION
  Report Type: Spontaneous
  Country: FR (occurrence: FR)
  Receive Date: 20130814
  Receipt Date: 20130814
  Transmission Date: 20140515
  Serious: Yes (Hospitalization)
  Sender: FDA-Public Use
  Company Number: FR-SANOFI-AVENTIS-2013SA079940

PATIENT
  Age: 72 Year
  Sex: Male

DRUGS (14)
  1. ELOXATINE [Suspect]
     Indication: PRODUCT USED FOR UNKNOWN INDICATION
     Route: 041
  2. ELOXATINE [Suspect]
     Indication: PRODUCT USED FOR UNKNOWN INDICATION
     Route: 041
  3. ELOXATINE [Suspect]
     Indication: PRODUCT USED FOR UNKNOWN INDICATION
     Route: 041
     Dates: start: 201303
  4. ELOXATINE [Suspect]
     Indication: PRODUCT USED FOR UNKNOWN INDICATION
     Route: 041
     Dates: end: 20130325
  5. FLUOROURACILE WINTHROP [Suspect]
     Indication: PRODUCT USED FOR UNKNOWN INDICATION
     Route: 041
  6. FLUOROURACILE WINTHROP [Suspect]
     Indication: PRODUCT USED FOR UNKNOWN INDICATION
     Route: 041
  7. FLUOROURACILE WINTHROP [Suspect]
     Indication: PRODUCT USED FOR UNKNOWN INDICATION
     Route: 041
     Dates: start: 201303, end: 20130325
  8. FLUOROURACILE WINTHROP [Suspect]
     Indication: PRODUCT USED FOR UNKNOWN INDICATION
     Route: 041
  9. TAMSULOSIN HYDROCHLORIDE [Concomitant]
  10. SINGULAIR [Concomitant]
  11. FLUTICASONE [Concomitant]
     Dosage: DOSE: 2 PUFFS DAILY
  12. BRICANYL [Concomitant]
     Dosage: DOSE: 2 PUFFS DAILY
  13. FENTANYL [Concomitant]
     Dosage: DOSE: 1-4DF
  14. MORPHINE SULFATE [Concomitant]

REACTIONS (2)
  - Encephalopathy [Recovered/Resolved]
  - Tonic convulsion [Recovered/Resolved]
